FAERS Safety Report 5635025-1 (Version None)
Quarter: 2008Q1

REPORT INFORMATION
  Report Type: 
  Country: None (occurrence: None)
  Receive Date: 20080222
  Receipt Date: 20080220
  Transmission Date: 20080703
  Serious: No
  Sender: FDA-Public Use
  Company Number: US-BAXTER-2008BH001417

PATIENT
  Age: 35 Year
  Sex: Female
  Weight: 70 kg

DRUGS (2)
  1. HEPARIN SODIUM [Suspect]
     Indication: COAGULOPATHY
     Route: 058
     Dates: start: 20080128, end: 20080202
  2. ASPIRIN [Concomitant]
     Indication: COAGULOPATHY
     Route: 048

REACTIONS (3)
  - DIARRHOEA [None]
  - INJECTION SITE ERYTHEMA [None]
  - VOMITING [None]
